FAERS Safety Report 4730816-3 (Version None)
Quarter: 2005Q3

REPORT INFORMATION
  Report Type: 
  Country: None (occurrence: None)
  Receive Date: 20050719
  Receipt Date: 20041108
  Transmission Date: 20060218
  Serious: Yes (Hospitalization)
  Sender: FDA-Public Use
  Company Number: 125660

PATIENT
  Age: 52 Year
  Sex: Male
  Weight: 83.9154 kg

DRUGS (2)
  1. AVONEX [Suspect]
     Indication: MULTIPLE SCLEROSIS
     Dosage: 30 UG;QW;IM; SEE IMAGE
     Route: 030
     Dates: start: 19990413, end: 19990413
  2. AVONEX [Suspect]
     Indication: MULTIPLE SCLEROSIS
     Dosage: 30 UG;QW;IM; SEE IMAGE
     Route: 030
     Dates: start: 20041101

REACTIONS (4)
  - ANGER [None]
  - EXTREMITY CONTRACTURE [None]
  - MULTIPLE SCLEROSIS RELAPSE [None]
  - NAUSEA [None]
